FAERS Safety Report 7964885-4 (Version None)
Quarter: 2011Q4

REPORT INFORMATION
  Report Type: 
  Country: None (occurrence: None)
  Receive Date: 20111208
  Receipt Date: 20111103
  Transmission Date: 20120403
  Serious: Yes (Other)
  Sender: FDA-Public Use
  Company Number: DZ-ROCHE-1007970

PATIENT
  Age: 61 Year
  Sex: Female

DRUGS (3)
  1. CORTICOIDS [Concomitant]
     Route: 048
  2. MABTHERA [Suspect]
     Indication: RHEUMATOID ARTHRITIS
     Route: 042
     Dates: start: 20081203, end: 20081217
  3. THEOPHYLLINE [Concomitant]

REACTIONS (2)
  - ASTHMA [None]
  - DYSPNOEA [None]
